FAERS Safety Report 8960364 (Version 2)
Quarter: 2013Q1

REPORT INFORMATION
  Report Type: Spontaneous
  Country: VE (occurrence: VE)
  Receive Date: 20121212
  Receipt Date: 20130211
  Transmission Date: 20140127
  Serious: Yes (Other)
  Sender: FDA-Public Use
  Company Number: VE-ELI_LILLY_AND_COMPANY-VE201206005107

PATIENT
  Age: 39 Year
  Sex: Female

DRUGS (4)
  1. HUMALOG 25% LISPRO, 75% NPL [Suspect]
     Indication: GESTATIONAL DIABETES
     Dosage: 10 U, EACH MORNING
     Dates: start: 20120612
  2. HUMALOG 25% LISPRO, 75% NPL [Suspect]
     Dosage: 10 U, EACH EVENING
     Dates: start: 20120612
  3. PRENATAL VITAMINS                  /01549301/ [Concomitant]
  4. FOLIC ACID [Concomitant]

REACTIONS (3)
  - Caesarean section [Recovered/Resolved]
  - Exposure during pregnancy [Recovered/Resolved]
  - Postoperative wound infection [Recovered/Resolved]
